FAERS Safety Report 23771515 (Version 1)
Quarter: 2024Q2

REPORT INFORMATION
  Report Type: Report from Study
  Country: CZ (occurrence: CZ)
  Receive Date: 20240423
  Receipt Date: 20240423
  Transmission Date: 20240716
  Serious: Yes (Hospitalization, Other)
  Sender: FDA-Public Use
  Company Number: CZ-SAMSUNG BIOEPIS-SB-2024-08016

PATIENT
  Age: 53 Year
  Sex: Male

DRUGS (1)
  1. ETANERCEPT [Suspect]
     Active Substance: ETANERCEPT
     Indication: Ankylosing spondylitis
     Route: 065
     Dates: end: 20240206

REACTIONS (3)
  - Adenocarcinoma of appendix [Not Recovered/Not Resolved]
  - Gastrointestinal neoplasm [Not Recovered/Not Resolved]
  - Appendix disorder [Unknown]

NARRATIVE: CASE EVENT DATE: 20231101
